FAERS Safety Report 17151823 (Version 1)
Quarter: 2019Q4

REPORT INFORMATION
  Report Type: Spontaneous
  Country: SE (occurrence: SE)
  Receive Date: 20191213
  Receipt Date: 20191213
  Transmission Date: 20200122
  Serious: Yes (Hospitalization)
  Sender: FDA-Public Use
  Company Number: SE-PFIZER INC-2019534203

PATIENT
  Age: 24 Year
  Sex: Female

DRUGS (2)
  1. VENLAFAXINE HCL [Suspect]
     Active Substance: VENLAFAXINE HYDROCHLORIDE
     Dosage: 525 MG, UNK
     Route: 048
     Dates: start: 20181028, end: 20181028
  2. PROPAVAN [Suspect]
     Active Substance: PROPIOMAZINE
     Dosage: 1 G, UNK
     Route: 048
     Dates: start: 20181028, end: 20181028

REACTIONS (4)
  - Intentional self-injury [Unknown]
  - Somnolence [Unknown]
  - Intentional overdose [Unknown]
  - Sinus tachycardia [Unknown]

NARRATIVE: CASE EVENT DATE: 20181028
